FAERS Safety Report 8463486 (Version 2)
Quarter: 2012Q4

REPORT INFORMATION
  Report Type: 
  Country: US (occurrence: US)
  Receive Date: 20120316
  Receipt Date: 20121011
  Transmission Date: 20130627
  Serious: Yes (Hospitalization)
  Sender: FDA-Public Use
  Company Number: US-BAYER-2012-023394

PATIENT
  Age: 38 Year
  Sex: Female
  Weight: 47.17 kg

DRUGS (3)
  1. YAZ [Suspect]
     Dosage: UNK
     Dates: start: 2006, end: 2009
  2. YASMIN [Suspect]
     Dosage: UNK
     Dates: start: 2006, end: 2009
  3. OCELLA [Suspect]
     Dosage: UNK
     Dates: start: 2006, end: 2009

REACTIONS (5)
  - Cholecystectomy [None]
  - Anhedonia [None]
  - Pain [None]
  - Anxiety [None]
  - Emotional distress [None]
